FAERS Safety Report 5589655-6 (Version None)
Quarter: 2008Q1

REPORT INFORMATION
  Report Type: 
  Country: None (occurrence: None)
  Receive Date: 20080114
  Receipt Date: 20080103
  Transmission Date: 20080703
  Serious: Yes (Other)
  Sender: FDA-Public Use
  Company Number: B0361429A

PATIENT
  Age: 32 Year
  Sex: Female

DRUGS (4)
  1. PAROXETINE HYDROCHLORIDE [Suspect]
     Indication: ANXIETY
     Dosage: 20MG PER DAY
     Route: 065
     Dates: start: 19990114, end: 20030901
  2. PROTHIADEN [Concomitant]
     Dates: start: 19951023
  3. LUSTRAL [Concomitant]
     Dates: start: 20030403
  4. EFFEXOR [Concomitant]
     Dates: start: 20030904

REACTIONS (19)
  - AGGRESSION [None]
  - ANOREXIA [None]
  - ANXIETY [None]
  - CONFUSIONAL STATE [None]
  - DELUSION [None]
  - DIZZINESS [None]
  - HYPERHIDROSIS [None]
  - MOOD ALTERED [None]
  - MOOD SWINGS [None]
  - PANIC ATTACK [None]
  - PARAESTHESIA [None]
  - PARANOIA [None]
  - SELF-INJURIOUS IDEATION [None]
  - SLEEP DISORDER [None]
  - SUICIDAL IDEATION [None]
  - TINNITUS [None]
  - VERTIGO [None]
  - VISION BLURRED [None]
  - WITHDRAWAL SYNDROME [None]
